FAERS Safety Report 5762333-6 (Version None)
Quarter: 2008Q2

REPORT INFORMATION
  Report Type: 
  Country: None (occurrence: None)
  Receive Date: 20080609
  Receipt Date: 20080602
  Transmission Date: 20081010
  Serious: Yes (Hospitalization)
  Sender: FDA-Public Use
  Company Number: PHHY2008FR09823

PATIENT
  Age: 65 Year
  Sex: Female

DRUGS (4)
  1. LIORESAL [Suspect]
     Indication: MUSCLE CONTRACTURE
     Dosage: 10 MG, UNK
     Dates: start: 20080414, end: 20080415
  2. XANAX [Concomitant]
  3. ARICEPT [Concomitant]
  4. PAROXETINE HCL [Concomitant]
     Route: 048

REACTIONS (2)
  - MUSCLE SPASTICITY [None]
  - SOMNOLENCE [None]
